FAERS Safety Report 21723550 (Version 1)
Quarter: 2022Q4

REPORT INFORMATION
  Report Type: Spontaneous
  Country: US (occurrence: None)
  Receive Date: 20221213
  Receipt Date: 20221213
  Transmission Date: 20230113
  Serious: No
  Sender: FDA-Public Use
  Company Number: None

PATIENT
  Age: 44 Year
  Sex: Female
  Weight: 86.4 kg

DRUGS (1)
  1. QUVIVIQ [Suspect]
     Active Substance: DARIDOREXANT
     Indication: Insomnia
     Dosage: OTHER QUANTITY : 30 CAPSULE(S);?FREQUENCY : AT BEDTIME;?
     Route: 048
     Dates: start: 20221212

REACTIONS (6)
  - Sleep paralysis [None]
  - Anxiety [None]
  - Dizziness [None]
  - Dyspnoea [None]
  - Tinnitus [None]
  - Hyperhidrosis [None]

NARRATIVE: CASE EVENT DATE: 20221213
